FAERS Safety Report 6391106-9 (Version None)
Quarter: 2009Q4

REPORT INFORMATION
  Report Type: 
  Country: None (occurrence: None)
  Receive Date: 20091006
  Receipt Date: 20091006
  Transmission Date: 20100525
  Serious: Yes (Life-Threatening, Hospitalization)
  Sender: FDA-Public Use
  Company Number: None

PATIENT
  Age: 78 Year
  Sex: Male
  Weight: 69.4003 kg

DRUGS (2)
  1. AMIODORONE - WYETH (MFR) IV INTRODUCED 10/7/08 1,200 TO 1600 MG THRU 1 [Suspect]
     Indication: ARRHYTHMIA
     Dosage: 200 MG 3 TIMES DAY 200 MG TWICE A DAY
     Dates: start: 20081007, end: 20090207
  2. AMIODORONE - WYETH (MFR) IV INTRODUCED 10/7/08 1,200 TO 1600 MG THRU 1 [Suspect]
     Indication: CARDIAC FIBRILLATION
     Dosage: 200 MG 3 TIMES DAY 200 MG TWICE A DAY
     Dates: start: 20081007, end: 20090207

REACTIONS (1)
  - PULMONARY TOXICITY [None]
